FAERS Safety Report 20465674 (Version 3)
Quarter: 2022Q2

REPORT INFORMATION
  Report Type: Spontaneous
  Country: TN (occurrence: TN)
  Receive Date: 20220212
  Receipt Date: 20220503
  Transmission Date: 20220721
  Serious: Yes (Life-Threatening, Hospitalization, Other)
  Sender: FDA-Public Use
  Company Number: TN-Accord-252888

PATIENT
  Age: 55 Year
  Sex: Female

DRUGS (3)
  1. DOCETAXEL [Suspect]
     Active Substance: DOCETAXEL
     Indication: Invasive ductal breast carcinoma
     Dosage: CUMULATIVE DOSE:100 MG/ M2
     Dates: start: 202109, end: 2021
  2. DESLORATADINE [Concomitant]
     Active Substance: DESLORATADINE
     Indication: Premedication
     Dates: start: 2021
  3. DEXAMETHASONE [Concomitant]
     Active Substance: DEXAMETHASONE
     Indication: Premedication
     Dates: start: 2021

REACTIONS (2)
  - Pancreatitis acute [Recovering/Resolving]
  - Pancreatitis necrotising [Recovering/Resolving]

NARRATIVE: CASE EVENT DATE: 20210901
